FAERS Safety Report 25437818 (Version 1)
Quarter: 2025Q2

REPORT INFORMATION
  Report Type: Spontaneous
  Country: FR (occurrence: FR)
  Receive Date: 20250616
  Receipt Date: 20250616
  Transmission Date: 20250716
  Serious: Yes (Hospitalization, Other)
  Sender: ACCORD
  Company Number: None

PATIENT
  Age: 70 Year
  Sex: Female
  Weight: 60 kg

DRUGS (1)
  1. METHOTREXATE [Suspect]
     Active Substance: METHOTREXATE
     Indication: Susac^s syndrome
     Dosage: STRENGTH: 10 MG
     Dates: start: 20200101

REACTIONS (1)
  - Mucinous breast carcinoma [Not Recovered/Not Resolved]

NARRATIVE: CASE EVENT DATE: 20250430
